FAERS Safety Report 12232546 (Version 2)
Quarter: 2016Q2

REPORT INFORMATION
  Report Type: Report from Study
  Country: US (occurrence: US)
  Receive Date: 20160401
  Receipt Date: 20160415
  Transmission Date: 20160815
  Serious: No
  Sender: FDA-Public Use
  Company Number: PHEH2016US007771

PATIENT
  Sex: Female

DRUGS (3)
  1. ZOMETA [Concomitant]
     Active Substance: ZOLEDRONIC ACID
     Indication: PRODUCT USED FOR UNKNOWN INDICATION
     Dosage: UNK UNK, QMO
     Route: 065
  2. AFINITOR [Suspect]
     Active Substance: EVEROLIMUS
     Indication: BREAST CANCER METASTATIC
     Dosage: 10 MG, QD
     Route: 048
  3. VITAMIN D [Concomitant]
     Active Substance: CHOLECALCIFEROL
     Indication: PRODUCT USED FOR UNKNOWN INDICATION
     Route: 065

REACTIONS (10)
  - Mood altered [Unknown]
  - Stomatitis [Unknown]
  - Diarrhoea [Unknown]
  - Joint swelling [Not Recovered/Not Resolved]
  - Depression [Unknown]
  - Swelling face [Unknown]
  - Rash generalised [Unknown]
  - Burning sensation [Unknown]
  - Peripheral swelling [Not Recovered/Not Resolved]
  - Rash pruritic [Recovering/Resolving]
